FAERS Safety Report 5716892-X (Version None)
Quarter: 2008Q2

REPORT INFORMATION
  Report Type: 
  Country: None (occurrence: None)
  Receive Date: 20080424
  Receipt Date: 20080328
  Transmission Date: 20081010
  Serious: No
  Sender: FDA-Public Use
  Company Number: US-BOEHRINGER INGELHEIM GMBH, GERMANY-2008-BP-04807BP

PATIENT

DRUGS (1)
  1. FLOMAX [Suspect]
     Route: 048
     Dates: start: 20080325

REACTIONS (1)
  - DRUG INEFFECTIVE [None]
